FAERS Safety Report 7264007-1 (Version None)
Quarter: 2011Q1

REPORT INFORMATION
  Report Type: 
  Country: None (occurrence: None)
  Receive Date: 20110130
  Receipt Date: 20101101
  Transmission Date: 20110831
  Serious: No
  Sender: FDA-Public Use
  Company Number: US-ABBOTT-10P-163-0682738-00

PATIENT
  Age: 43 Year
  Sex: Female

DRUGS (5)
  1. HUMIRA [Suspect]
     Indication: CROHN'S DISEASE
     Dosage: TWO 40MG INJECTIONS PER DAY FOR TWO DAYS
     Dates: start: 20101020, end: 20101022
  2. MERCAPTOPURINE [Concomitant]
     Indication: CROHN'S DISEASE
  3. MESALAMINE [Concomitant]
     Indication: CROHN'S DISEASE
  4. HUMIRA [Suspect]
  5. HUMIRA [Suspect]
     Dosage: 80 MG TWO WEEKS (DAY 15)

REACTIONS (1)
  - NAUSEA [None]
